FAERS Safety Report 10303417 (Version 1)
Quarter: 2014Q3

REPORT INFORMATION
  Report Type: Spontaneous
  Country: IT (occurrence: IT)
  Receive Date: 20140714
  Receipt Date: 20140714
  Transmission Date: 20150326
  Serious: Yes (Hospitalization)
  Sender: FDA-Public Use
  Company Number: IT-ACTAVIS-2014-15129

PATIENT
  Age: 77 Year
  Sex: Male

DRUGS (7)
  1. ESKIM [Concomitant]
     Indication: MYOCARDIAL ISCHAEMIA
     Dosage: 3 POS UNITS
     Route: 048
  2. MIMPARA [Concomitant]
     Active Substance: CINACALCET HYDROCHLORIDE
     Indication: RENAL FAILURE CHRONIC
     Dosage: 30 MG FREQ UNK.
     Route: 048
  3. ALLOPURINOL. [Concomitant]
     Active Substance: ALLOPURINOL
     Indication: RENAL FAILURE CHRONIC
     Dosage: 100 MG UNK. FREQ.
     Route: 048
  4. TRAMADOL [Suspect]
     Active Substance: TRAMADOL
     Indication: SCIATICA
     Dosage: 1 POS. UNIT AS NEEDED
     Route: 030
     Dates: start: 20140510, end: 20140511
  5. RENVELA [Concomitant]
     Active Substance: SEVELAMER CARBONATE
     Indication: RENAL FAILURE CHRONIC
     Dosage: 3 POS. UNITS
     Route: 065
  6. BISOPROLOL FUMARATE AND HYDROCHLOROTHIAZIDE [Concomitant]
     Active Substance: BISOPROLOL FUMARATE\HYDROCHLOROTHIAZIDE
     Indication: HYPERTENSION
     Dosage: 2.5 MG UNK. FREQ.
     Route: 048
  7. TRAMADOL (UNKNOWN) [Suspect]
     Active Substance: TRAMADOL
     Indication: SCIATICA
     Dosage: UNKNOWN
     Route: 048
     Dates: start: 20140510, end: 20140511

REACTIONS (2)
  - Coma [Unknown]
  - Epilepsy [Unknown]

NARRATIVE: CASE EVENT DATE: 20140511
